FAERS Safety Report 24208755 (Version 1)
Quarter: 2024Q3

REPORT INFORMATION
  Report Type: Spontaneous
  Country: US (occurrence: US)
  Receive Date: 20240814
  Receipt Date: 20240814
  Transmission Date: 20241017
  Serious: Yes (Other)
  Sender: DR REDDYS
  Company Number: US-DRL-USA-LIT/USA/24/0011752

PATIENT
  Age: 80 Year
  Sex: Male

DRUGS (3)
  1. LENALIDOMIDE [Suspect]
     Active Substance: LENALIDOMIDE
     Indication: Plasma cell myeloma
     Dosage: 15 MG DAILY FOR 21 DAYS, FOLLOWED BY 7 DAYS OFF
  2. LENALIDOMIDE [Suspect]
     Active Substance: LENALIDOMIDE
     Dosage: DOSE OF 10 MG FOR LAST 3 CYCLES
  3. LENALIDOMIDE [Suspect]
     Active Substance: LENALIDOMIDE

REACTIONS (4)
  - Diffuse large B-cell lymphoma [Unknown]
  - Drug ineffective for unapproved indication [Unknown]
  - Segmented hyalinising vasculitis [Unknown]
  - Fatigue [Unknown]
